FAERS Safety Report 20435489 (Version 1)
Quarter: 2022Q1

REPORT INFORMATION
  Report Type: Report from Study
  Country: US (occurrence: US)
  Receive Date: 20220206
  Receipt Date: 20220206
  Transmission Date: 20220424
  Serious: Yes (Other)
  Sender: FDA-Public Use
  Company Number: US-BIOGEN-2022BI01092642

PATIENT
  Sex: Female

DRUGS (1)
  1. TECFIDERA [Suspect]
     Active Substance: DIMETHYL FUMARATE
     Indication: Relapsing-remitting multiple sclerosis
     Route: 065
     Dates: start: 20201203

REACTIONS (5)
  - Diplegia [Unknown]
  - Cervical radiculopathy [Unknown]
  - Insomnia [Unknown]
  - Gait disturbance [Unknown]
  - Visual impairment [Unknown]
